FAERS Safety Report 4405946-6 (Version None)
Quarter: 2004Q3

REPORT INFORMATION
  Report Type: 
  Country: None (occurrence: None)
  Receive Date: 20040723
  Receipt Date: 20040216
  Transmission Date: 20050211
  Serious: No
  Sender: FDA-Public Use
  Company Number: US-GLAXOSMITHKLINE-A0498325A

PATIENT
  Age: 85 Year
  Sex: Female

DRUGS (5)
  1. AVANDIA [Suspect]
     Dosage: 4MG PER DAY
     Route: 048
     Dates: start: 20040211
  2. DIGOXIN [Concomitant]
  3. TOPROL-XL [Concomitant]
  4. LOTENSIN [Concomitant]
  5. HYDROCHLOROTHIAZIDE [Concomitant]

REACTIONS (1)
  - BLOOD GLUCOSE INCREASED [None]
